FAERS Safety Report 16775702 (Version 1)
Quarter: 2019Q3

REPORT INFORMATION
  Report Type: Spontaneous
  Country: US (occurrence: US)
  Receive Date: 20190716
  Receipt Date: 20190716
  Transmission Date: 20191005
  Serious: No
  Sender: FDA-Public Use
  Company Number: None

PATIENT
  Age: 10 Year
  Sex: Male
  Weight: 31.2 kg

DRUGS (2)
  1. DEXMETHYLPHENIDATE 5 MG (GENERIC) [Suspect]
     Active Substance: DEXMETHYLPHENIDATE
     Indication: ATTENTION DEFICIT/HYPERACTIVITY DISORDER
     Route: 048
     Dates: start: 20190710
  2. DEXMETHYLPHENIDATE 10 MG (GENERIC) [Suspect]
     Active Substance: DEXMETHYLPHENIDATE
     Indication: ATTENTION DEFICIT/HYPERACTIVITY DISORDER
     Route: 048
     Dates: start: 20190710

REACTIONS (2)
  - Agitation [None]
  - Product substitution issue [None]

NARRATIVE: CASE EVENT DATE: 20190710
